FAERS Safety Report 5081308-6 (Version None)
Quarter: 2006Q3

REPORT INFORMATION
  Report Type: 
  Country: None (occurrence: None)
  Receive Date: 20060814
  Receipt Date: 20060814
  Transmission Date: 20061208
  Serious: Yes (Hospitalization)
  Sender: FDA-Public Use
  Company Number: None

PATIENT
  Sex: Female
  Weight: 63.5036 kg

DRUGS (9)
  1. CYCLOPHOSPHAMIDE [Suspect]
     Indication: NON-HODGKIN'S LYMPHOMA
     Dosage: 750 MG/M2 IV Q 21 DAYS
     Route: 042
     Dates: start: 20060719
  2. VINCRISTINE [Suspect]
     Indication: NON-HODGKIN'S LYMPHOMA
     Dosage: 1.4 NG/M2 IV Q21 DAYS
     Route: 042
     Dates: start: 20060719
  3. ADRIAMYCIN [Suspect]
     Indication: NON-HODGKIN'S LYMPHOMA
     Dosage: 50 MG/M2 IV Q 21 DAYS
     Route: 042
     Dates: start: 20060719
  4. PROZAC [Concomitant]
  5. TRAZODNE [Concomitant]
  6. PERCOCET [Concomitant]
  7. MS CONTIN [Concomitant]
  8. ZOFRAN [Concomitant]
  9. NUVARING [Concomitant]

REACTIONS (9)
  - CHILLS [None]
  - DYSPHAGIA [None]
  - FEBRILE NEUTROPENIA [None]
  - NAUSEA [None]
  - ORAL CANDIDIASIS [None]
  - STOMATITIS [None]
  - VAGINAL CANDIDIASIS [None]
  - VOMITING [None]
  - WHITE BLOOD CELL COUNT DECREASED [None]
